FAERS Safety Report 15502926 (Version 1)
Quarter: 2018Q4

REPORT INFORMATION
  Report Type: Spontaneous
  Country: US (occurrence: US)
  Receive Date: 20181008
  Receipt Date: 20181008
  Transmission Date: 20190205
  Serious: Yes (Hospitalization, Other)
  Sender: FDA-Public Use
  Company Number: None

PATIENT
  Age: 51 Year
  Sex: Female
  Weight: 66.6 kg

DRUGS (10)
  1. NEXIUM [Concomitant]
     Active Substance: ESOMEPRAZOLE MAGNESIUM
  2. PROZAC [Concomitant]
     Active Substance: FLUOXETINE HYDROCHLORIDE
  3. CLONAZEPAM. [Suspect]
     Active Substance: CLONAZEPAM
     Indication: PANIC DISORDER
     Dosage: ?          QUANTITY:1.5 DF DOSAGE FORM;OTHER FREQUENCY:NIGHT 1MG/ DAY.5MG;?
     Route: 048
  4. MAGNESIUM [Concomitant]
     Active Substance: MAGNESIUM
  5. KRILL OIL/OMEGA 3 [Concomitant]
  6. XANAX [Concomitant]
     Active Substance: ALPRAZOLAM
  7. TYLENOL [Concomitant]
     Active Substance: ACETAMINOPHEN
  8. CLONAZEPAM. [Suspect]
     Active Substance: CLONAZEPAM
     Indication: ANXIETY
     Dosage: ?          QUANTITY:1.5 DF DOSAGE FORM;OTHER FREQUENCY:NIGHT 1MG/ DAY.5MG;?
     Route: 048
  9. IBUPROFEN. [Concomitant]
     Active Substance: IBUPROFEN
  10. MULTIVITAMIN [Concomitant]
     Active Substance: VITAMINS

REACTIONS (6)
  - Nausea [None]
  - Panic attack [None]
  - Hyperhidrosis [None]
  - Drug ineffective [None]
  - Depersonalisation/derealisation disorder [None]
  - Withdrawal syndrome [None]

NARRATIVE: CASE EVENT DATE: 20180919
